FAERS Safety Report 5593579-8 (Version None)
Quarter: 2007Q4

REPORT INFORMATION
  Report Type: 
  Country: None (occurrence: None)
  Receive Date: 20071214
  Receipt Date: 20070126
  Transmission Date: 20080405
  Serious: Yes (Hospitalization, Other)
  Sender: FDA-Public Use
  Company Number: 2007007327

PATIENT
  Age: 37 Year
  Sex: Female

DRUGS (5)
  1. XANAX [Suspect]
     Indication: ANXIETY
     Dosage: (2 IN 1 D), ORAL
     Route: 048
     Dates: start: 20050501, end: 20060501
  2. WELLBUTRIN [Suspect]
     Indication: DEPRESSION
     Dosage: (1 IN 1 D), ORAL
     Route: 048
     Dates: start: 20050501, end: 20060501
  3. AMBIEN [Suspect]
     Indication: SLEEP DISORDER
     Dosage: (1 IN 1 D), ORAL
     Route: 048
     Dates: start: 20050801, end: 20060501
  4. BUSPAR [Suspect]
     Indication: ANXIETY
     Dosage: (2 IN 1 D), ORAL
     Route: 048
     Dates: start: 20050501, end: 20060501
  5. REBIF [Concomitant]

REACTIONS (1)
  - GRAND MAL CONVULSION [None]
